FAERS Safety Report 5814482-1 (Version None)
Quarter: 2008Q3

REPORT INFORMATION
  Report Type: 
  Country: None (occurrence: None)
  Receive Date: 20080718
  Receipt Date: 20080708
  Transmission Date: 20090109
  Serious: Yes (Hospitalization)
  Sender: FDA-Public Use
  Company Number: FI-JNJFOC-20080702469

PATIENT
  Sex: Female

DRUGS (2)
  1. REMICADE [Suspect]
     Route: 042
  2. REMICADE [Suspect]
     Indication: CROHN'S DISEASE
     Route: 042

REACTIONS (11)
  - ABDOMINAL DISCOMFORT [None]
  - DIARRHOEA [None]
  - EYELID PAIN [None]
  - FALL [None]
  - JAW FRACTURE [None]
  - ORAL PAIN [None]
  - RHINALGIA [None]
  - SKIN DISCOLOURATION [None]
  - SYNCOPE [None]
  - TOOTH INJURY [None]
  - TYPE IV HYPERSENSITIVITY REACTION [None]
